FAERS Safety Report 9494912 (Version 1)
Quarter: 2013Q3

REPORT INFORMATION
  Report Type: Spontaneous
  Country: FR (occurrence: None)
  Receive Date: 20130828
  Receipt Date: 20130828
  Transmission Date: 20140515
  Serious: Yes (Hospitalization)
  Sender: FDA-Public Use
  Company Number: 2013CP000103

PATIENT
  Age: 24 Year
  Sex: Female

DRUGS (7)
  1. PERFALGAN [Suspect]
     Indication: PAIN
     Route: 042
     Dates: start: 20130625
  2. DOLIPRANE [Suspect]
     Indication: PAIN
     Route: 048
     Dates: start: 20130624
  3. LAMALINE [Suspect]
     Indication: PAIN
     Route: 048
     Dates: start: 20130624, end: 20130625
  4. N-ACETYLCYSTEINE [Suspect]
     Indication: PRODUCT USED FOR UNKNOWN INDICATION
     Dates: start: 20130625
  5. SODIUM VALPROATE [Concomitant]
  6. RISPERIDONE [Concomitant]
  7. ZOPICLONE [Concomitant]

REACTIONS (2)
  - Hepatitis [None]
  - Pancreatitis [None]
